FAERS Safety Report 7562856-3 (Version None)
Quarter: 2011Q2

REPORT INFORMATION
  Report Type: 
  Country: None (occurrence: None)
  Receive Date: 20110615
  Receipt Date: 20110606
  Transmission Date: 20111010
  Serious: Yes (Life-Threatening)
  Sender: FDA-Public Use
  Company Number: 2011TJ0010

PATIENT
  Age: 54 Year
  Sex: Female

DRUGS (3)
  1. BENICAR [Concomitant]
  2. UNSPECIFIED HORMONE REPLACEMENT THERAPY MEDICATION [Concomitant]
  3. TWINJECT 0.15 [Suspect]
     Indication: ANAPHYLACTIC REACTION
     Dosage: .3 MG, AS NEEDED
     Dates: start: 20110604, end: 20110604

REACTIONS (2)
  - PRODUCT QUALITY ISSUE [None]
  - DEVICE MALFUNCTION [None]
